FAERS Safety Report 22383314 (Version 1)
Quarter: 2023Q2

REPORT INFORMATION
  Report Type: Report from Study
  Country: CA (occurrence: CA)
  Receive Date: 20230530
  Receipt Date: 20230530
  Transmission Date: 20230722
  Serious: Yes (Other)
  Sender: FDA-Public Use
  Company Number: CA-002147023-NVSC2023CA121875

PATIENT
  Age: 70 Year
  Sex: Female

DRUGS (4)
  1. ILARIS [Suspect]
     Active Substance: CANAKINUMAB
     Indication: Muckle-Wells syndrome
     Dosage: 150 MG, 2 MONTHS
     Route: 058
     Dates: start: 20190923
  2. REACTIN [Concomitant]
     Indication: Product used for unknown indication
     Dosage: UNK, BID, STRENGTH 20
     Route: 065
  3. PREDNISONE [Concomitant]
     Active Substance: PREDNISONE
     Indication: Product used for unknown indication
     Dosage: UNK
     Route: 065
  4. XOLAIR [Concomitant]
     Active Substance: OMALIZUMAB
     Indication: Product used for unknown indication
     Dosage: UNK
     Route: 065

REACTIONS (1)
  - Cellulitis [Unknown]
